FAERS Safety Report 24079762 (Version 2)
Quarter: 2024Q3

REPORT INFORMATION
  Report Type: Spontaneous
  Country: US (occurrence: US)
  Receive Date: 20240711
  Receipt Date: 20240715
  Transmission Date: 20241017
  Serious: No
  Sender: NOVARTIS
  Company Number: US-002147023-NVSC2024US142659

PATIENT

DRUGS (1)
  1. COSENTYX [Suspect]
     Active Substance: SECUKINUMAB
     Indication: Product used for unknown indication
     Dosage: UNK
     Route: 065

REACTIONS (5)
  - Drug dose omission by device [Unknown]
  - Accidental exposure to product [Unknown]
  - Device leakage [Unknown]
  - Device malfunction [Unknown]
  - Exposure via skin contact [Unknown]
